FAERS Safety Report 10471092 (Version 1)
Quarter: 2014Q3

REPORT INFORMATION
  Report Type: Spontaneous
  Country: IT (occurrence: IT)
  Receive Date: 20140923
  Receipt Date: 20140923
  Transmission Date: 20150326
  Serious: Yes (Hospitalization)
  Sender: FDA-Public Use
  Company Number: IT-BAYER-2014-139675

PATIENT
  Age: 57 Year
  Sex: Male

DRUGS (6)
  1. SOLOSA [Concomitant]
     Active Substance: GLIMEPIRIDE
     Dosage: DAILY DOSE 1 MG
     Route: 048
  2. CARDIOASPIRIN [Suspect]
     Active Substance: ASPIRIN
     Indication: CARDIAC VALVE PROSTHESIS USER
     Dosage: DAILY DOSE 100 MG
     Route: 048
     Dates: start: 20110331, end: 20140706
  3. METFORMIN [Concomitant]
     Active Substance: METFORMIN HYDROCHLORIDE
     Dosage: DAILY DOSE 1500 MG
     Route: 048
  4. LUVION [Concomitant]
     Active Substance: CANRENONE
     Dosage: DAILY DOSE 50 MG
     Route: 048
  5. SINTROM [Suspect]
     Active Substance: ACENOCOUMAROL
     Indication: CARDIAC VALVE PROSTHESIS USER
     Dosage: THE WEEKLY CUMULATIVE DOSE OF 21 MG
     Route: 048
     Dates: start: 20061219, end: 20140706
  6. RANITIDINE [Concomitant]
     Active Substance: RANITIDINE\RANITIDINE HYDROCHLORIDE
     Dosage: DAILY DOSE 300 MG
     Route: 048

REACTIONS (7)
  - Subdural haematoma [Not Recovered/Not Resolved]
  - Headache [None]
  - Sopor [Not Recovered/Not Resolved]
  - Hypokinesia [None]
  - Hemiparesis [Not Recovered/Not Resolved]
  - Speech disorder [None]
  - Pupils unequal [Unknown]

NARRATIVE: CASE EVENT DATE: 20140707
